FAERS Safety Report 21043393 (Version 3)
Quarter: 2022Q3

REPORT INFORMATION
  Report Type: Spontaneous
  Country: FR (occurrence: FR)
  Receive Date: 20220705
  Receipt Date: 20220823
  Transmission Date: 20221027
  Serious: Yes (Death, Hospitalization, Other)
  Sender: FDA-Public Use
  Company Number: None

PATIENT
  Age: 86 Year
  Sex: Female
  Weight: 70.4 kg

DRUGS (12)
  1. ELIQUIS [Suspect]
     Active Substance: APIXABAN
     Indication: Ischaemic stroke
     Dosage: 5 MG
     Route: 065
     Dates: start: 20211115, end: 20220106
  2. GABAPENTIN [Suspect]
     Active Substance: GABAPENTIN
     Dosage: 900 MG
     Dates: start: 202111, end: 20220110
  3. LAMALINE (ACETAMINOPHEN\CAFFEINE\OPIUM) [Suspect]
     Active Substance: ACETAMINOPHEN\CAFFEINE\OPIUM
     Dosage: UNK
     Route: 065
     Dates: start: 2017, end: 20220110
  4. ROSUVASTATIN [Suspect]
     Active Substance: ROSUVASTATIN
     Dosage: 5 MG
     Dates: start: 2017, end: 20220110
  5. ACETAMINOPHEN [Suspect]
     Active Substance: ACETAMINOPHEN
     Dosage: 500 MG
     Route: 065
     Dates: start: 2017, end: 20220110
  6. RAMIPRIL [Suspect]
     Active Substance: RAMIPRIL
     Dosage: 5 MG
     Route: 065
     Dates: start: 2017, end: 20220106
  7. CALCIUM VITAMINE D3 BIOGARAN [Concomitant]
     Dosage: 500 MG/400 UI
     Route: 065
     Dates: start: 2017
  8. OXAZEPAM [Concomitant]
     Active Substance: OXAZEPAM
     Dosage: 5 MG
     Route: 065
     Dates: start: 20211222
  9. LEVOTHYROXINE SODIUM [Concomitant]
     Active Substance: LEVOTHYROXINE SODIUM
     Dosage: 50 UG
     Route: 065
     Dates: start: 2017
  10. PREDNISONE [Concomitant]
     Active Substance: PREDNISONE
     Dosage: 50 MG
     Route: 065
     Dates: start: 20211226
  11. BISOPROLOL FUMARATE [Concomitant]
     Active Substance: BISOPROLOL FUMARATE
     Dosage: 2.5 MG
     Route: 065
     Dates: start: 20211223
  12. ENOXAPARIN SODIUM [Concomitant]
     Active Substance: ENOXAPARIN SODIUM
     Dosage: 6000 UI
     Route: 065
     Dates: start: 20220106

REACTIONS (1)
  - Mixed liver injury [Fatal]

NARRATIVE: CASE EVENT DATE: 20220107
